FAERS Safety Report 13093470 (Version 3)
Quarter: 2017Q1

REPORT INFORMATION
  Report Type: Report from Study
  Country: US (occurrence: US)
  Receive Date: 20170106
  Receipt Date: 20170209
  Transmission Date: 20170428
  Serious: Yes (Hospitalization, Other)
  Sender: FDA-Public Use
  Company Number: US-SAOL THERAPEUTICS-2017SAO00009

PATIENT
  Age: 13 Year
  Sex: Female

DRUGS (2)
  1. LIORESAL [Suspect]
     Active Substance: BACLOFEN
     Indication: CEREBRAL PALSY
     Dosage: 600 ?G, \DAY
     Route: 037
  2. LIORESAL [Suspect]
     Active Substance: BACLOFEN
     Dosage: 820.4 ?G, \DAY
     Route: 037
     Dates: start: 20160121

REACTIONS (6)
  - Discomfort [Recovered/Resolved]
  - Withdrawal syndrome [Recovered/Resolved]
  - Spinal fusion surgery [Recovered/Resolved]
  - Complication associated with device [Recovered/Resolved]
  - Underdose [Recovered/Resolved]
  - Device damage [Recovered/Resolved]

NARRATIVE: CASE EVENT DATE: 201612
